FAERS Safety Report 12336343 (Version 1)
Quarter: 2016Q2

REPORT INFORMATION
  Report Type: Spontaneous
  Country: US (occurrence: None)
  Receive Date: 20160504
  Receipt Date: 20160504
  Transmission Date: 20160815
  Serious: No
  Sender: FDA-Public Use
  Company Number: None

PATIENT
  Age: 45 Year
  Sex: Female
  Weight: 104.78 kg

DRUGS (14)
  1. HYDROXYZINE HCL [Concomitant]
     Active Substance: HYDROXYZINE HYDROCHLORIDE
  2. DEXILANT [Concomitant]
     Active Substance: DEXLANSOPRAZOLE
  3. ESTRATEST [Concomitant]
     Active Substance: ESTROGENS, ESTERIFIED\METHYLTESTOSTERONE
  4. BUSPIRONE [Concomitant]
     Active Substance: BUSPIRONE HYDROCHLORIDE
  5. MYRBETRIQ [Concomitant]
     Active Substance: MIRABEGRON
  6. PLAQUINEL [Concomitant]
  7. SAXENDA [Suspect]
     Active Substance: LIRAGLUTIDE
     Indication: WEIGHT DECREASED
     Dosage: GIVEN INTO/UNDER THE SKIN
     Route: 048
     Dates: start: 20160404
  8. HUMIRA [Concomitant]
     Active Substance: ADALIMUMAB
  9. CALCIUM [Concomitant]
     Active Substance: CALCIUM
  10. DHEA [Concomitant]
     Active Substance: PRASTERONE
  11. ZYRTEC [Concomitant]
     Active Substance: CETIRIZINE HYDROCHLORIDE
  12. LEFLUNOMIDE. [Concomitant]
     Active Substance: LEFLUNOMIDE
  13. VITAMIN D [Concomitant]
     Active Substance: CHOLECALCIFEROL
  14. MOVANTIK [Concomitant]
     Active Substance: NALOXEGOL OXALATE

REACTIONS (4)
  - Fatigue [None]
  - Nausea [None]
  - Dysgeusia [None]
  - Parosmia [None]

NARRATIVE: CASE EVENT DATE: 20160404
